FAERS Safety Report 8225566-5 (Version None)
Quarter: 2012Q1

REPORT INFORMATION
  Report Type: 
  Country: None (occurrence: None)
  Receive Date: 20120321
  Receipt Date: 20120315
  Transmission Date: 20120608
  Serious: Yes (Other)
  Sender: FDA-Public Use
  Company Number: PHHY2012DE023503

PATIENT

DRUGS (2)
  1. PREDNISONE TAB [Suspect]
     Indication: PROSTATE CANCER METASTATIC
  2. CABAZITAXEL [Suspect]
     Indication: PROSTATE CANCER METASTATIC

REACTIONS (5)
  - NEUTROPENIA [None]
  - FEBRILE NEUTROPENIA [None]
  - DIARRHOEA [None]
  - NEUROPATHY PERIPHERAL [None]
  - FATIGUE [None]
